FAERS Safety Report 17391736 (Version 2)
Quarter: 2020Q2

REPORT INFORMATION
  Report Type: Spontaneous
  Country: US (occurrence: US)
  Receive Date: 20200207
  Receipt Date: 20200524
  Transmission Date: 20200713
  Serious: Yes (Other)
  Sender: FDA-Public Use
  Company Number: US-NOVOPROD-710134

PATIENT
  Sex: Female
  Weight: 88.9 kg

DRUGS (1)
  1. NOVOLOG MIX 70/30 [Suspect]
     Active Substance: INSULIN ASPART
     Indication: TYPE 2 DIABETES MELLITUS
     Dosage: SLIDING SCALE
     Route: 058
     Dates: start: 201901, end: 2020

REACTIONS (6)
  - Hypersensitivity [Recovered/Resolved]
  - Precancerous condition [Not Recovered/Not Resolved]
  - Hypersensitivity [Unknown]
  - Staphylococcal infection [Recovered/Resolved]
  - Skin mass [Not Recovered/Not Resolved]
  - Wound [Not Recovered/Not Resolved]

NARRATIVE: CASE EVENT DATE: 201911
